FAERS Safety Report 8685371 (Version 2)
Quarter: 2012Q4

REPORT INFORMATION
  Report Type: Report from Study
  Country: DE (occurrence: DE)
  Receive Date: 20120726
  Receipt Date: 20120913
  Transmission Date: 20130627
  Serious: Yes (Death)
  Sender: FDA-Public Use
  Company Number: DE-ACTELION-A-US2012-69131

PATIENT
  Age: 73 Year
  Sex: Female

DRUGS (15)
  1. VENTAVIS [Suspect]
     Indication: PULMONARY ARTERIAL HYPERTENSION
     Dosage: 5.0
     Route: 055
     Dates: start: 20110327, end: 20120302
  2. VENTAVIS [Suspect]
     Dosage: x1/day; q 1-2 days
     Route: 055
  3. TRACLEER [Suspect]
     Indication: PULMONARY ARTERIAL HYPERTENSION
     Dosage: 125 mg, bid
     Route: 048
  4. TOREM [Concomitant]
  5. HEPARIN [Concomitant]
  6. ALLOPURINOL [Concomitant]
     Dosage: UNK
     Dates: end: 20120630
  7. FALITHROM [Concomitant]
     Dosage: UNK
     Dates: end: 20120610
  8. XIPAMID [Concomitant]
     Dosage: UNK
     Dates: end: 20120620
  9. TRILEPTAL [Concomitant]
     Dosage: UNK
     Dates: end: 20120614
  10. SPIRONOLACTONE [Concomitant]
  11. PANTOZAL [Concomitant]
  12. SALOFALK [Concomitant]
  13. ACETYLCYSTEINE [Concomitant]
  14. ACETYLSALICYLIC ACID [Concomitant]
  15. MAGNESIUM [Concomitant]

REACTIONS (7)
  - Pulseless electrical activity [Fatal]
  - Right ventricular failure [Fatal]
  - Insomnia [Recovering/Resolving]
  - Gastric disorder [Recovering/Resolving]
  - Asthenia [Recovering/Resolving]
  - Fatigue [Recovering/Resolving]
  - Increased upper airway secretion [Recovering/Resolving]
